FAERS Safety Report 14687745 (Version 2)
Quarter: 2018Q2

REPORT INFORMATION
  Report Type: Report from Study
  Country: KR (occurrence: KR)
  Receive Date: 20180328
  Receipt Date: 20180403
  Transmission Date: 20180711
  Serious: No
  Sender: FDA-Public Use
  Company Number: KR-ASTRAZENECA-2018SE35741

PATIENT
  Age: 454 Month
  Sex: Female

DRUGS (6)
  1. SINGULAIR [Concomitant]
     Active Substance: MONTELUKAST SODIUM
     Indication: ASTHMA
     Route: 048
     Dates: start: 20170203
  2. MEDI-563 [Suspect]
     Active Substance: BENRALIZUMAB
     Indication: ASTHMA
     Dosage: 30 MG/ML
     Route: 058
     Dates: start: 20180213
  3. AZEPTIN [Concomitant]
     Active Substance: AZELASTINE HYDROCHLORIDE
     Indication: ASTHMA
     Route: 048
     Dates: start: 20170419
  4. SYMBICORT [Concomitant]
     Active Substance: BUDESONIDE\FORMOTEROL FUMARATE DIHYDRATE
     Indication: ASTHMA
     Dosage: 640 UG
     Route: 055
     Dates: start: 20170214
  5. MEDI-563 [Suspect]
     Active Substance: BENRALIZUMAB
     Indication: ASTHMA
     Dosage: 30 MG/ML
     Route: 058
     Dates: start: 20180313
  6. ASIMA [Concomitant]
     Active Substance: DOXOFYLLINE
     Indication: ASTHMA
     Route: 048
     Dates: start: 20170419

REACTIONS (1)
  - Enteritis [Recovered/Resolved]

NARRATIVE: CASE EVENT DATE: 20180303
